FAERS Safety Report 4884882-5 (Version None)
Quarter: 2005Q4

REPORT INFORMATION
  Report Type: 
  Country: None (occurrence: None)
  Receive Date: 20051201
  Receipt Date: 20050919
  Transmission Date: 20060501
  Serious: No
  Sender: FDA-Public Use
  Company Number: 2005PV002289

PATIENT
  Age: 65 Year
  Sex: Male
  Weight: 89.3586 kg

DRUGS (7)
  1. BYETTA [Suspect]
     Indication: DIABETES MELLITUS NON-INSULIN-DEPENDENT
     Dosage: 10 MCG;BID;SC    5 MCG;SC
     Route: 058
     Dates: start: 20050101, end: 20050101
  2. BYETTA [Suspect]
     Indication: DIABETES MELLITUS NON-INSULIN-DEPENDENT
     Dosage: 10 MCG;BID;SC    5 MCG;SC
     Route: 058
     Dates: start: 20050901
  3. LANTUS [Concomitant]
  4. TOPROL-XL [Concomitant]
  5. STARLIX [Concomitant]
  6. PAIN MEDICATION [Concomitant]
  7. IBUPROFEN [Concomitant]

REACTIONS (2)
  - BLOOD GLUCOSE INCREASED [None]
  - DRUG EFFECT DECREASED [None]
